FAERS Safety Report 6012709-7 (Version None)
Quarter: 2008Q4

REPORT INFORMATION
  Report Type: 
  Country: None (occurrence: None)
  Receive Date: 20081217
  Receipt Date: 20081202
  Transmission Date: 20090506
  Serious: Yes (Other)
  Sender: FDA-Public Use
  Company Number: PHHY2008JP27460

PATIENT
  Age: 76 Year
  Sex: Male

DRUGS (1)
  1. VISUDYNE [Suspect]

REACTIONS (6)
  - CHOROIDAL NEOVASCULARISATION [None]
  - DISEASE PROGRESSION [None]
  - MACULAR OEDEMA [None]
  - RETINAL HAEMORRHAGE [None]
  - SUBRETINAL FIBROSIS [None]
  - VISUAL ACUITY REDUCED [None]
